FAERS Safety Report 4331283-4 (Version None)
Quarter: 2004Q2

REPORT INFORMATION
  Report Type: 
  Country: None (occurrence: None)
  Receive Date: 20040402
  Receipt Date: 20040329
  Transmission Date: 20050107
  Serious: Yes (Other)
  Sender: FDA-Public Use
  Company Number: 001135

PATIENT
  Age: 35 Year
  Sex: Female
  Weight: 61.2 kg

DRUGS (1)
  1. CLARAVIS [Suspect]
     Indication: ACNE
     Dosage: 20.00 MG, BID, ORAL
     Route: 048
     Dates: start: 20040223, end: 20040225

REACTIONS (1)
  - PREGNANCY [None]
